FAERS Safety Report 10265643 (Version 1)
Quarter: 2014Q2

REPORT INFORMATION
  Report Type: Spontaneous
  Country: PL (occurrence: PL)
  Receive Date: 20140627
  Receipt Date: 20140627
  Transmission Date: 20141212
  Serious: Yes (Hospitalization, Other)
  Sender: FDA-Public Use
  Company Number: PHHY2014PL075323

PATIENT
  Age: 31 Year
  Sex: Female

DRUGS (6)
  1. PAROXETINE [Suspect]
     Dosage: 20 MG, UNK
  2. PAROXETINE [Suspect]
     Dosage: 100 MG, UNK
  3. HYDROXYCARBAMIDE [Suspect]
     Dosage: 10 G, UNK
  4. ALCOHOL [Suspect]
  5. ACETYLSALICYLIC ACID [Concomitant]
     Indication: ESSENTIAL THROMBOCYTHAEMIA
     Dosage: 75 MG, UNK
  6. OMEPRAZOLE [Concomitant]
     Indication: GASTROOESOPHAGEAL REFLUX DISEASE

REACTIONS (6)
  - Macrocytosis [Recovering/Resolving]
  - Suicide attempt [Recovering/Resolving]
  - Psychomotor hyperactivity [Recovering/Resolving]
  - Depressed mood [Recovering/Resolving]
  - Platelet count increased [Recovering/Resolving]
  - Intentional overdose [Unknown]
